FAERS Safety Report 7303498-4 (Version None)
Quarter: 2011Q1

REPORT INFORMATION
  Report Type: 
  Country: None (occurrence: None)
  Receive Date: 20110221
  Receipt Date: 20110210
  Transmission Date: 20110831
  Serious: Yes (Other)
  Sender: FDA-Public Use
  Company Number: PHHY2011FR11622

PATIENT
  Sex: Female
  Weight: 3.75 kg

DRUGS (1)
  1. SYNTOCINON [Suspect]
     Route: 064

REACTIONS (5)
  - MECONIUM IN AMNIOTIC FLUID [None]
  - FOETAL DISTRESS SYNDROME [None]
  - CONVULSION NEONATAL [None]
  - DRUG EXPOSURE DURING PREGNANCY [None]
  - HYPOXIC-ISCHAEMIC ENCEPHALOPATHY [None]
